FAERS Safety Report 7293127-0 (Version None)
Quarter: 2011Q1

REPORT INFORMATION
  Report Type: 
  Country: None (occurrence: None)
  Receive Date: 20110215
  Receipt Date: 20110208
  Transmission Date: 20110831
  Serious: Yes (Hospitalization)
  Sender: FDA-Public Use
  Company Number: DE-ROCHE-756004

PATIENT
  Sex: Male
  Weight: 65.5 kg

DRUGS (9)
  1. FINASTERID [Concomitant]
  2. FLUOROURACIL [Suspect]
     Route: 065
  3. VALSARTAN [Concomitant]
  4. VIANI [Concomitant]
     Route: 055
  5. FOLINIC ACID [Suspect]
     Route: 065
  6. ATROVENT [Concomitant]
     Dosage: REPORTED AS: ATOVANT INHALATION.
     Route: 055
  7. CAPECITABINE [Suspect]
     Dosage: LAST DOSE PRIOR TO SAE 24 JANUARY 2011 FREQUENCY: BIWEEKLY
     Route: 048
     Dates: start: 20100817
  8. BEVACIZUMAB [Suspect]
     Dosage: LAST DOSE PRIOR TO SAE 11 JANUARY 2011
     Route: 042
     Dates: start: 20100817
  9. OXALIPLATIN [Suspect]
     Dosage: LAST DOSE PRIOR TO SAE 18 JANUARY 2011. FREQUENCY:  DAYS 1, 8 AND 22
     Route: 042
     Dates: start: 20100817

REACTIONS (3)
  - URINARY TRACT INFECTION [None]
  - GENERAL PHYSICAL HEALTH DETERIORATION [None]
  - PNEUMONIA [None]
